FAERS Safety Report 9802913 (Version 1)
Quarter: 2014Q1

REPORT INFORMATION
  Report Type: Spontaneous
  Country: US (occurrence: None)
  Receive Date: 20140106
  Receipt Date: 20140106
  Transmission Date: 20141002
  Serious: Yes (Other)
  Sender: FDA-Public Use
  Company Number: None

PATIENT
  Age: 40 Year
  Sex: Female

DRUGS (1)
  1. SUBOXONE [Suspect]
     Indication: WITHDRAWAL SYNDROME
     Dosage: 3 FILMS
     Route: 060
     Dates: start: 20140102

REACTIONS (1)
  - Urticaria [None]
